FAERS Safety Report 4481443-7 (Version None)
Quarter: 2004Q3

REPORT INFORMATION
  Report Type: 
  Country: None (occurrence: None)
  Receive Date: 20040923
  Receipt Date: 20040526
  Transmission Date: 20050211
  Serious: No
  Sender: FDA-Public Use
  Company Number: USA040568675

PATIENT
  Age: 77 Year
  Sex: Female

DRUGS (4)
  1. FORTEO [Suspect]
     Indication: OSTEOPOROSIS
     Route: 065
     Dates: start: 20040101
  2. METHOTREXATE [Concomitant]
  3. MULTIVITAMIN [Concomitant]
  4. ALEVE [Concomitant]

REACTIONS (4)
  - HERNIA [None]
  - JOINT SWELLING [None]
  - LACRIMATION INCREASED [None]
  - VISUAL DISTURBANCE [None]
